FAERS Safety Report 10587507 (Version 1)
Quarter: 2014Q4

REPORT INFORMATION
  Report Type: Spontaneous
  Country: SE (occurrence: SE)
  Receive Date: 20141117
  Receipt Date: 20141117
  Transmission Date: 20150529
  Serious: Yes (Hospitalization)
  Sender: FDA-Public Use
  Company Number: SE-NOVOPROD-428717

PATIENT
  Age: 65 Year
  Sex: Male

DRUGS (10)
  1. NOVOMIX 30 FLEXPEN [Concomitant]
     Active Substance: INSULIN ASPART
  2. TROMBYL [Concomitant]
     Active Substance: ASPIRIN
     Dosage: 75 MG TABLET
  3. FENURIL [Concomitant]
  4. SIMVASTATIN SANDOZ [Concomitant]
     Active Substance: SIMVASTATIN
     Dosage: 10 MG TABLET
  5. LOSARTAN [Concomitant]
     Active Substance: LOSARTAN
     Dosage: 50 MG, QD
  6. AMLODIPIN                          /00972401/ [Concomitant]
     Active Substance: AMLODIPINE BESYLATE
     Dosage: 5 MG TABLET
  7. PREDNISOLON PFIZER [Concomitant]
     Active Substance: PREDNISOLONE
     Dosage: 10 MG TABLET
  8. ALLOPURINOL NYCOMED [Concomitant]
     Dosage: 100 MG TABLET
  9. VICTOZA [Suspect]
     Active Substance: LIRAGLUTIDE
     Indication: TYPE 2 DIABETES MELLITUS
     Dosage: 1.2 MG, QD
     Route: 058
     Dates: start: 20140903, end: 20141010
  10. METFORMIN [Concomitant]
     Active Substance: METFORMIN HYDROCHLORIDE
     Dosage: 500 MG TABLET

REACTIONS (5)
  - Asthenia [Unknown]
  - Appetite disorder [Recovered/Resolved]
  - Weight decreased [Unknown]
  - Dehydration [Unknown]
  - Acute kidney injury [Recovered/Resolved]

NARRATIVE: CASE EVENT DATE: 20140920
